FAERS Safety Report 19533581 (Version 1)
Quarter: 2021Q3

REPORT INFORMATION
  Report Type: Spontaneous
  Country: US (occurrence: US)
  Receive Date: 20210713
  Receipt Date: 20210713
  Transmission Date: 20211014
  Serious: Yes (Death, Other)
  Sender: FDA-Public Use
  Company Number: US-SA-2021SA229479

PATIENT
  Age: 31 Year
  Sex: Female

DRUGS (2)
  1. ZANTAC [Suspect]
     Active Substance: RANITIDINE HYDROCHLORIDE
     Indication: DYSPEPSIA
  2. ZANTAC [Suspect]
     Active Substance: RANITIDINE HYDROCHLORIDE
     Indication: ABDOMINAL DISCOMFORT
     Dosage: 150 MG, QW
     Dates: start: 201106, end: 201602

REACTIONS (5)
  - Gastric cancer [Fatal]
  - Oesophageal carcinoma [Fatal]
  - Lung neoplasm malignant [Fatal]
  - Hepatic cancer [Fatal]
  - Breast cancer stage III [Fatal]

NARRATIVE: CASE EVENT DATE: 20130601
